FAERS Safety Report 14357059 (Version 3)
Quarter: 2018Q3

REPORT INFORMATION
  Report Type: Spontaneous
  Country: US (occurrence: US)
  Receive Date: 20180105
  Receipt Date: 20180917
  Transmission Date: 20181010
  Serious: Yes (Hospitalization, Other)
  Sender: FDA-Public Use
  Company Number: US-DSJP-DSU-2017-140404

PATIENT

DRUGS (3)
  1. AZOR [Suspect]
     Active Substance: AMLODIPINE BESYLATE\OLMESARTAN MEDOXOMIL
     Indication: PRODUCT USED FOR UNKNOWN INDICATION
     Dosage: 5/40 MG, UNK
     Dates: start: 20120101
  2. AZOR [Suspect]
     Active Substance: AMLODIPINE BESYLATE\OLMESARTAN MEDOXOMIL
     Dosage: 5/20 MG, UNK
     Dates: start: 20120101
  3. BENICAR [Suspect]
     Active Substance: OLMESARTAN MEDOXOMIL
     Indication: PRODUCT USED FOR UNKNOWN INDICATION
     Dosage: 40 MG, UNK
     Dates: start: 20120101

REACTIONS (6)
  - Haemorrhoids [Unknown]
  - Diverticulitis [Unknown]
  - Hiatus hernia [Unknown]
  - Sprue-like enteropathy [Recovered/Resolved]
  - Diverticulum intestinal [Unknown]
  - Abdominal mass [Unknown]

NARRATIVE: CASE EVENT DATE: 20120701
